FAERS Safety Report 11331263 (Version 1)
Quarter: 2015Q3

REPORT INFORMATION
  Report Type: Report from Study
  Country: BR (occurrence: BR)
  Receive Date: 20150803
  Receipt Date: 20150803
  Transmission Date: 20151125
  Serious: Yes (Death, Hospitalization)
  Sender: FDA-Public Use
  Company Number: PHHY2015BR091614

PATIENT
  Sex: Male
  Weight: 57 kg

DRUGS (1)
  1. EXELON PATCH [Suspect]
     Active Substance: RIVASTIGMINE
     Indication: PARKINSON^S DISEASE
     Dosage: 1 ADHESIVE, QD
     Route: 062

REACTIONS (3)
  - Pneumonia [Fatal]
  - Malaise [Unknown]
  - Diabetes mellitus [Fatal]
